FAERS Safety Report 6907449-3 (Version None)
Quarter: 2010Q3

REPORT INFORMATION
  Report Type: 
  Country: None (occurrence: None)
  Receive Date: 20100805
  Receipt Date: 20100728
  Transmission Date: 20110219
  Serious: Yes (Hospitalization)
  Sender: FDA-Public Use
  Company Number: US-BIOGENIDEC-2010BI025970

PATIENT
  Age: 40 Year
  Sex: Female
  Weight: 108 kg

DRUGS (1)
  1. TYSABRI [Suspect]
     Indication: MULTIPLE SCLEROSIS
     Route: 042
     Dates: start: 20100506

REACTIONS (5)
  - ASTHENIA [None]
  - GAIT DISTURBANCE [None]
  - PROCEDURAL PAIN [None]
  - UTERINE LEIOMYOMA [None]
  - VISION BLURRED [None]
